FAERS Safety Report 6270674-1 (Version None)
Quarter: 2009Q3

REPORT INFORMATION
  Report Type: 
  Country: None (occurrence: None)
  Receive Date: 20090716
  Receipt Date: 20090706
  Transmission Date: 20100115
  Serious: Yes (Other)
  Sender: FDA-Public Use
  Company Number: PHHY2009US03799

PATIENT
  Sex: Female

DRUGS (1)
  1. RECLAST [Suspect]
     Dosage: UNK
     Dates: start: 20071201

REACTIONS (7)
  - ENDODONTIC PROCEDURE [None]
  - EYE LASER SURGERY [None]
  - GLAUCOMA [None]
  - HERPES ZOSTER [None]
  - JAW DISORDER [None]
  - MALAISE [None]
  - TOOTH DISORDER [None]
